FAERS Safety Report 9156662 (Version 2)
Quarter: 2013Q1

REPORT INFORMATION
  Report Type: Spontaneous
  Country: US (occurrence: None)
  Receive Date: 20130211
  Receipt Date: 20130221
  Transmission Date: 20140127
  Serious: Yes (Hospitalization, Disabling)
  Sender: FDA-Public Use
  Company Number: 2013SUN00058

PATIENT
  Age: 72 Year
  Sex: Male
  Weight: 109 kg

DRUGS (9)
  1. METFORMIN [Suspect]
     Indication: TYPE 2 DIABETES MELLITUS
     Route: 048
     Dates: start: 200808, end: 20091013
  2. ALOGLIPTIN [Suspect]
     Indication: TYPE 2 DIABETES MELLITUS
     Dosage: 25 MG, (1 IN 1 D)?
     Route: 048
     Dates: start: 20091109, end: 20101207
  3. SIMVASTATIN (SIMVASTATIN) [Concomitant]
  4. LISINOPRIL (LISINOPRIL) [Concomitant]
  5. HYDROCHLOROTHIAZIDE (HYDROCHLOROTHIAZIDE) [Concomitant]
  6. ACETAMINOPHEN (PARACETAMOL) [Concomitant]
  7. HYDROCODONE (HYDROCODONE) [Concomitant]
  8. GLUCOSAMINE (GLUCOSAMINE) [Concomitant]
  9. NORCO (PARACETAMOL, HYDROCODONE BITARTATE) [Concomitant]

REACTIONS (1)
  - Cerebrovascular accident [None]
